FAERS Safety Report 4578522-2 (Version None)
Quarter: 2005Q1

REPORT INFORMATION
  Report Type: 
  Country: None (occurrence: None)
  Receive Date: 20050207
  Receipt Date: 20050207
  Transmission Date: 20050727
  Serious: Yes (Life-Threatening, Hospitalization, Disabling)
  Sender: FDA-Public Use
  Company Number: None

PATIENT
  Sex: Male

DRUGS (1)
  1. LEUPROLIDE [Suspect]
     Indication: PROSTATE CANCER
     Dates: start: 20050118, end: 20050118

REACTIONS (7)
  - HEADACHE [None]
  - HYPOPITUITARISM [None]
  - IIIRD NERVE PARALYSIS [None]
  - NAUSEA [None]
  - PITUITARY ENLARGEMENT [None]
  - POLYURIA [None]
  - POST PROCEDURAL COMPLICATION [None]
